FAERS Safety Report 25283434 (Version 2)
Quarter: 2025Q4

REPORT INFORMATION
  Report Type: Report from Study
  Country: TW (occurrence: TW)
  Receive Date: 20250508
  Receipt Date: 20251124
  Transmission Date: 20260117
  Serious: Yes (Life-Threatening, Hospitalization, Other)
  Sender: GLAXOSMITHKLINE
  Company Number: TW-TAKEDA-2025TUS043337

PATIENT
  Age: 53 Year
  Sex: Female
  Weight: 43 kg

DRUGS (20)
  1. NIRAPARIB [Suspect]
     Active Substance: NIRAPARIB
     Indication: Ovarian cancer
     Dosage: 200 MILLIGRAM, QD
  2. Flumarin [Concomitant]
     Indication: Pyuria
     Dosage: 1000 MG, BID(1000 MILLIGRAM, Q12H)
  3. Megest [Concomitant]
     Indication: Decreased appetite
     Dosage: 5 ML, TID(5 MILLILITER, TID)
  4. ATIVAN [Concomitant]
     Active Substance: LORAZEPAM
     Indication: Nausea
     Dosage: UNK UNK, QD
  5. Ceficin [Concomitant]
     Indication: Pyuria
     Dosage: UNK UNK, QD
  6. CELEBREX [Concomitant]
     Active Substance: CELECOXIB
     Indication: Analgesic therapy
     Dosage: UNK UNK, BID
  7. Ferrum hausman [Concomitant]
     Indication: Prophylaxis
     Dosage: UNK UNK, BID
  8. Ferrum hausman [Concomitant]
     Indication: Iron deficiency
  9. KENTAMIN [Concomitant]
     Indication: Vitamin B complex deficiency
     Dosage: UNK UNK, TID
  10. LACTAM [Concomitant]
     Indication: Analgesic therapy
     Dosage: UNK UNK, QID(UNK UNK, Q6HR)
  11. LOPEDIN [Concomitant]
     Indication: Diarrhoea
     Dosage: UNK, TID
  12. LYRICA [Concomitant]
     Active Substance: PREGABALIN
     Indication: Neuralgia
     Dosage: UNK UNK, BID
  13. NAPROXEN [Concomitant]
     Active Substance: NAPROXEN
     Indication: Osteoarthritis
     Dosage: UNK UNK, BID
  14. OXYCONTIN [Concomitant]
     Active Substance: OXYCODONE HYDROCHLORIDE
     Indication: Analgesic therapy
     Dosage: UNK UNK, BID
  15. OXYCODONE HYDROCHLORIDE [Concomitant]
     Active Substance: OXYCODONE HYDROCHLORIDE
     Indication: Analgesic therapy
     Dosage: UNK UNK, Q6HR
  16. OXYCODONE HYDROCHLORIDE [Concomitant]
     Active Substance: OXYCODONE HYDROCHLORIDE
     Dosage: UNK UNK, BID
  17. PANTOPRAZOLE SODIUM [Concomitant]
     Active Substance: PANTOPRAZOLE SODIUM
     Indication: Hyperchlorhydria
     Dosage: UNK UNK, QD
  18. XANAX [Concomitant]
     Active Substance: ALPRAZOLAM
     Indication: Insomnia
     Dosage: UNK UNK, QD
  19. CLOBETA [Concomitant]
     Active Substance: CLOBETASOL PROPIONATE\COAL TAR
     Indication: Eczema
     Dosage: UNK
     Route: 065
  20. FENTANYL [Concomitant]
     Active Substance: FENTANYL
     Indication: Analgesic therapy
     Dosage: UNK

REACTIONS (2)
  - Thrombocytopenia [Recovered/Resolved with Sequelae]
  - Urosepsis [Recovered/Resolved]

NARRATIVE: CASE EVENT DATE: 20250318
